FAERS Safety Report 21562692 (Version 1)
Quarter: 2022Q4

REPORT INFORMATION
  Report Type: Spontaneous
  Country: US (occurrence: US)
  Receive Date: 20221107
  Receipt Date: 20221107
  Transmission Date: 20230113
  Serious: Yes (Other)
  Sender: FDA-Public Use
  Company Number: US-GILEAD-2022-0604092

PATIENT
  Age: 42 Year
  Sex: Male

DRUGS (2)
  1. DESCOVY [Suspect]
     Active Substance: EMTRICITABINE\TENOFOVIR ALAFENAMIDE FUMARATE
     Indication: Prophylaxis against HIV infection
     Dosage: UNK
     Route: 065
  2. IRON [Concomitant]
     Active Substance: IRON

REACTIONS (9)
  - Helicobacter infection [Recovered/Resolved]
  - Syncope [Recovered/Resolved]
  - Haematemesis [Recovered/Resolved]
  - Palpitations [Recovered/Resolved]
  - Gastrointestinal disorder [Recovered/Resolved]
  - Blood lactic acid increased [Recovered/Resolved]
  - Head injury [Recovered/Resolved]
  - Tinnitus [Recovered/Resolved]
  - Diarrhoea [Recovered/Resolved]

NARRATIVE: CASE EVENT DATE: 20220401
